FAERS Safety Report 6912050-1 (Version None)
Quarter: 2010Q3

REPORT INFORMATION
  Report Type: 
  Country: None (occurrence: None)
  Receive Date: 20100806
  Receipt Date: 20071119
  Transmission Date: 20110219
  Serious: No
  Sender: FDA-Public Use
  Company Number: US-PFIZER INC-2007089457

PATIENT
  Sex: Female
  Weight: 128.37 kg

DRUGS (4)
  1. DETROL LA [Suspect]
     Indication: INCONTINENCE
     Route: 048
     Dates: start: 20070913
  2. HYDROCHLOROTHIAZIDE [Concomitant]
  3. INDERAL LA [Concomitant]
  4. LISINOPRIL [Concomitant]

REACTIONS (1)
  - DRUG INEFFECTIVE [None]
